FAERS Safety Report 9086989 (Version 1)
Quarter: 2013Q1

REPORT INFORMATION
  Report Type: Report from Study
  Country: US (occurrence: US)
  Receive Date: 20130130
  Receipt Date: 20130130
  Transmission Date: 20140127
  Serious: No
  Sender: FDA-Public Use
  Company Number: US-ABBOTT-12P-163-0983552-00

PATIENT
  Age: 67 Year
  Sex: Male

DRUGS (4)
  1. HUMIRA [Suspect]
     Indication: PSORIASIS
     Dates: start: 2007
  2. HUMIRA [Suspect]
  3. HUMIRA [Suspect]
  4. UNKNOWN STATIN [Concomitant]
     Indication: PRODUCT USED FOR UNKNOWN INDICATION
     Dosage: DAILY

REACTIONS (7)
  - Respiratory tract congestion [Recovered/Resolved]
  - Hypersensitivity [Unknown]
  - Drug effect decreased [Unknown]
  - Psoriasis [Recovered/Resolved]
  - Paraesthesia [Recovered/Resolved]
  - Skin lesion [Not Recovered/Not Resolved]
  - Inappropriate schedule of drug administration [Unknown]
